FAERS Safety Report 20516054 (Version 1)
Quarter: 2022Q1

REPORT INFORMATION
  Report Type: Spontaneous
  Country: US (occurrence: US)
  Receive Date: 20220225
  Receipt Date: 20220225
  Transmission Date: 20220424
  Serious: Yes (Other)
  Sender: FDA-Public Use
  Company Number: US-CELLTRION INC.-2022US002007

PATIENT

DRUGS (2)
  1. TRUXIMA [Suspect]
     Active Substance: RITUXIMAB-ABBS
     Indication: Migraine
     Dosage: 1000 MG Q 6 MONTHS
     Dates: start: 20210611
  2. TRUXIMA [Suspect]
     Active Substance: RITUXIMAB-ABBS
     Indication: Multiple sclerosis
     Dosage: 500 MG Q 6 MONTHS
     Dates: start: 20211208

REACTIONS (3)
  - Multiple sclerosis [Unknown]
  - Migraine [Unknown]
  - Off label use [Unknown]
